FAERS Safety Report 25661315 (Version 1)
Quarter: 2025Q3

REPORT INFORMATION
  Report Type: Spontaneous
  Country: US (occurrence: US)
  Receive Date: 20250808
  Receipt Date: 20250808
  Transmission Date: 20251021
  Serious: No
  Sender: PFIZER
  Company Number: US-PFIZER INC-202500159712

PATIENT
  Age: 61 Year
  Sex: Female

DRUGS (10)
  1. IBRANCE [Suspect]
     Active Substance: PALBOCICLIB
     Dates: start: 20250617
  2. HERCEPTIN [Concomitant]
     Active Substance: TRASTUZUMAB
  3. LETROZOLE [Concomitant]
     Active Substance: LETROZOLE
  4. LYRICA [Concomitant]
     Active Substance: PREGABALIN
  5. MAGNESIUM [Concomitant]
     Active Substance: MAGNESIUM
  6. TRADJENTA [Concomitant]
     Active Substance: LINAGLIPTIN
  7. VITAMIN B12 [Concomitant]
     Active Substance: CYANOCOBALAMIN
  8. VITAMIN D NOS [Concomitant]
     Active Substance: CHOLECALCIFEROL\ERGOCALCIFEROL
  9. ZINC [Concomitant]
     Active Substance: ZINC
  10. ZOLEDRONIC [Concomitant]
     Active Substance: ZOLEDRONIC ACID

REACTIONS (1)
  - Diarrhoea [Not Recovered/Not Resolved]
